FAERS Safety Report 7846759-2 (Version None)
Quarter: 2011Q4

REPORT INFORMATION
  Report Type: 
  Country: None (occurrence: None)
  Receive Date: 20111025
  Receipt Date: 20111018
  Transmission Date: 20120403
  Serious: Yes (Hospitalization, Other)
  Sender: FDA-Public Use
  Company Number: PHEH2010US03875

PATIENT
  Sex: Male

DRUGS (16)
  1. LOTREL [Concomitant]
  2. PLAVIX [Concomitant]
     Dosage: 75 MG, QD
     Route: 048
  3. PROCRIT                            /00909301/ [Concomitant]
     Dosage: 40000 U
  4. ALLOPURINOL [Concomitant]
  5. ZOMETA [Suspect]
     Indication: PROSTATE CANCER METASTATIC
  6. CASODEX [Concomitant]
  7. ALOXI [Concomitant]
     Dosage: 25 MG
     Route: 042
  8. CELEBREX [Concomitant]
  9. ZOLOFT [Concomitant]
     Dosage: 50 MG , DAILY
     Route: 048
  10. TAXOTERE [Concomitant]
     Dosage: 68 MG IV OVER AN HOUR
     Route: 042
  11. MORPHINE ^ADRIAN^ [Concomitant]
  12. SODIUM CHLORIDE [Concomitant]
  13. DECADRON [Concomitant]
     Dosage: 4 MG
     Route: 042
  14. INDOMETHACIN [Concomitant]
  15. AREDIA [Suspect]
     Indication: OSTEOPOROSIS
  16. ROXICODONE [Concomitant]
     Dosage: 15 MG

REACTIONS (33)
  - INTERVERTEBRAL DISC PROTRUSION [None]
  - PARAESTHESIA [None]
  - BRAIN OEDEMA [None]
  - CELLULITIS [None]
  - METASTASES TO SPINE [None]
  - TRANSIENT ISCHAEMIC ATTACK [None]
  - HEMIPARESIS [None]
  - RENAL ATROPHY [None]
  - BACK PAIN [None]
  - INJURY [None]
  - OSTEITIS [None]
  - HYDRONEPHROSIS [None]
  - PAIN IN EXTREMITY [None]
  - OSTEOARTHRITIS [None]
  - HAEMATURIA [None]
  - GOUTY ARTHRITIS [None]
  - OSTEONECROSIS OF JAW [None]
  - SWELLING [None]
  - OSTEOSCLEROSIS [None]
  - CAROTID ARTERIAL EMBOLUS [None]
  - SPINAL OSTEOARTHRITIS [None]
  - PAIN [None]
  - PRIMARY SEQUESTRUM [None]
  - HYPOAESTHESIA [None]
  - BONE PAIN [None]
  - MENTAL STATUS CHANGES [None]
  - OSTEOMYELITIS CHRONIC [None]
  - EXPOSED BONE IN JAW [None]
  - METASTASES TO BONE [None]
  - ECCHYMOSIS [None]
  - OEDEMA PERIPHERAL [None]
  - LUMBAR SPINAL STENOSIS [None]
  - CAROTID ARTERY STENOSIS [None]
